FAERS Safety Report 8385711 (Version 5)
Quarter: 2013Q2

REPORT INFORMATION
  Report Type: Spontaneous
  Country: US (occurrence: US)
  Receive Date: 20120202
  Receipt Date: 20130429
  Transmission Date: 20140414
  Serious: Yes (Hospitalization, Congenital Anomaly)
  Sender: FDA-Public Use
  Company Number: US-JNJFOC-20111206712

PATIENT
  Sex: Male

DRUGS (3)
  1. TOPAMAX [Suspect]
     Indication: FOETAL EXPOSURE DURING PREGNANCY
     Route: 064
     Dates: start: 20071030, end: 20100319
  2. SELENIUM [Suspect]
     Indication: FOETAL EXPOSURE DURING PREGNANCY
     Route: 064
  3. FOLIC ACID [Concomitant]
     Dosage: 4MCG TO 4MG.
     Route: 064

REACTIONS (8)
  - Cleft lip and palate [Unknown]
  - Respiratory distress [Recovered/Resolved]
  - Chronic fatigue syndrome [Unknown]
  - Ventricular septal defect [Unknown]
  - Emotional disorder [Unknown]
  - Weight decreased [Unknown]
  - Atrial septal defect [Unknown]
  - Patent ductus arteriosus [Unknown]
